FAERS Safety Report 4988430-0 (Version None)
Quarter: 2006Q2

REPORT INFORMATION
  Report Type: 
  Country: None (occurrence: None)
  Receive Date: 20060426
  Receipt Date: 20060418
  Transmission Date: 20061013
  Serious: Yes (Hospitalization)
  Sender: FDA-Public Use
  Company Number: 224258

PATIENT
  Age: 70 Year
  Sex: Female

DRUGS (1)
  1. TNKASE [Suspect]
     Indication: ISCHAEMIC STROKE

REACTIONS (3)
  - DRUG INEFFECTIVE [None]
  - MEDICATION ERROR [None]
  - WRONG DRUG ADMINISTERED [None]
